FAERS Safety Report 7842138-2 (Version None)
Quarter: 2011Q4

REPORT INFORMATION
  Report Type: 
  Country: None (occurrence: None)
  Receive Date: 20111019
  Receipt Date: 20111005
  Transmission Date: 20120403
  Serious: Yes (Other)
  Sender: FDA-Public Use
  Company Number: 2011SP047095

PATIENT
  Age: 39 Year
  Sex: Male

DRUGS (3)
  1. PEG-INTRON [Suspect]
     Indication: HEPATITIS C
     Dosage: 150 MCG;QW
     Dates: start: 20110621, end: 20110928
  2. HEPARIN [Concomitant]
  3. REBETOL [Suspect]
     Indication: HEPATITIS C
     Dates: start: 20110621, end: 20110928

REACTIONS (1)
  - PULMONARY EMBOLISM [None]
